FAERS Safety Report 6861997-3 (Version None)
Quarter: 2010Q3

REPORT INFORMATION
  Report Type: 
  Country: None (occurrence: None)
  Receive Date: 20100720
  Receipt Date: 20100720
  Transmission Date: 20110219
  Serious: Yes (Hospitalization)
  Sender: FDA-Public Use
  Company Number: None

PATIENT
  Sex: Female
  Weight: 56.6996 kg

DRUGS (11)
  1. REVLIMID [Suspect]
     Indication: MYELODYSPLASTIC SYNDROME
     Dosage: 20 MG. DAILY Q 21 DAYS ORAL
     Route: 048
     Dates: start: 20100304
  2. DYAZIDE [Concomitant]
  3. TEMAZEPAM [Concomitant]
  4. MULTI-VITAMIN [Concomitant]
  5. VITAMIN B-12 [Concomitant]
  6. VITAMIN B6 [Concomitant]
  7. CALCIUM [Concomitant]
  8. NEXIUM [Concomitant]
  9. IBUPROFEN TABLETS [Concomitant]
  10. ALLEGRA [Concomitant]
  11. LEXAPRO [Concomitant]

REACTIONS (6)
  - CHILLS [None]
  - COLD SWEAT [None]
  - DEHYDRATION [None]
  - DIZZINESS [None]
  - DYSPNOEA [None]
  - VOMITING [None]
